FAERS Safety Report 10303647 (Version 1)
Quarter: 2014Q3

REPORT INFORMATION
  Report Type: Spontaneous
  Country: IT (occurrence: IT)
  Receive Date: 20140714
  Receipt Date: 20140714
  Transmission Date: 20150326
  Serious: Yes (Other)
  Sender: FDA-Public Use
  Company Number: IT-ACTAVIS-2014-15069

PATIENT
  Age: 63 Year
  Sex: Male

DRUGS (6)
  1. GABAPENTIN (UNKNOWN) [Suspect]
     Active Substance: GABAPENTIN
     Indication: BIPOLAR DISORDER
     Dosage: 1100 MG, DAILY
     Route: 048
     Dates: start: 20130101, end: 20140415
  2. GABAPENTIN (UNKNOWN) [Suspect]
     Active Substance: GABAPENTIN
     Dosage: 1100 MG, DAILY
     Route: 048
     Dates: start: 20140416, end: 20140520
  3. GABAPENTIN (UNKNOWN) [Suspect]
     Active Substance: GABAPENTIN
     Dosage: 1500 MG, DAILY
     Route: 048
     Dates: start: 20140521, end: 20140605
  4. HALDOL [Suspect]
     Active Substance: HALOPERIDOL
     Indication: BIPOLAR DISORDER
     Dosage: 5 MG, DAILY
     Route: 048
     Dates: start: 20140521, end: 20140605
  5. RISPERDAL [Suspect]
     Active Substance: RISPERIDONE
     Indication: BIPOLAR DISORDER
     Dosage: 3 MG, DAILY
     Route: 048
     Dates: start: 20140416, end: 20140605
  6. RISPERDAL [Suspect]
     Active Substance: RISPERIDONE
     Dosage: 3 MG, DAILY
     Route: 048
     Dates: start: 20130101, end: 20140415

REACTIONS (7)
  - Dysarthria [Not Recovered/Not Resolved]
  - Psychomotor hyperactivity [Unknown]
  - Adverse reaction [Unknown]
  - Off label use [Unknown]
  - Dysphagia [Not Recovered/Not Resolved]
  - Weight decreased [Unknown]
  - Insomnia [Unknown]

NARRATIVE: CASE EVENT DATE: 20140523
